FAERS Safety Report 21490705 (Version 17)
Quarter: 2025Q1

REPORT INFORMATION
  Report Type: Report from Study
  Country: US (occurrence: US)
  Receive Date: 20221021
  Receipt Date: 20250304
  Transmission Date: 20250409
  Serious: Yes (Other)
  Sender: TAKEDA
  Company Number: US-TAKEDA-2020TUS053189

PATIENT
  Age: 63 Year
  Sex: Female
  Weight: 48 kg

DRUGS (6)
  1. HUMAN IMMUNOGLOBULIN G [Suspect]
     Active Substance: HUMAN IMMUNOGLOBULIN G
     Indication: Primary immunodeficiency syndrome
  2. HUMAN IMMUNOGLOBULIN G [Suspect]
     Active Substance: HUMAN IMMUNOGLOBULIN G
     Indication: Immunodeficiency common variable
     Dosage: 8 GRAM, 1/WEEK
  3. HUMAN IMMUNOGLOBULIN G [Suspect]
     Active Substance: HUMAN IMMUNOGLOBULIN G
     Dosage: 20 GRAM, Q2WEEKS
  4. HUMAN IMMUNOGLOBULIN G [Suspect]
     Active Substance: HUMAN IMMUNOGLOBULIN G
     Dosage: 4 GRAM, 2/WEEK
  5. HUMAN IMMUNOGLOBULIN G [Suspect]
     Active Substance: HUMAN IMMUNOGLOBULIN G
  6. COVID-19 VACCINE NOS [Suspect]
     Active Substance: COVID-19 VACCINE
     Indication: COVID-19 immunisation

REACTIONS (48)
  - Mast cell activation syndrome [Unknown]
  - Pneumonia [Unknown]
  - SLE arthritis [Unknown]
  - Inappropriate schedule of product administration [Unknown]
  - Injection site pruritus [Unknown]
  - Infected bite [Recovered/Resolved]
  - Stress [Unknown]
  - Obstruction [Unknown]
  - COVID-19 [Recovered/Resolved]
  - Heart rate decreased [Unknown]
  - Gait disturbance [Unknown]
  - Posture abnormal [Unknown]
  - Blood immunoglobulin G increased [Unknown]
  - Viral infection [Recovering/Resolving]
  - Dysphonia [Unknown]
  - Cluster headache [Unknown]
  - Sinusitis [Recovering/Resolving]
  - Respiratory tract infection [Unknown]
  - Post-acute COVID-19 syndrome [Unknown]
  - Insurance issue [Unknown]
  - Fibromyalgia [Unknown]
  - Post-traumatic stress disorder [Unknown]
  - Osteoporosis [Unknown]
  - Arthritis [Unknown]
  - Product distribution issue [Unknown]
  - Device infusion issue [Unknown]
  - Product dose omission issue [Unknown]
  - Product storage error [Unknown]
  - Allergy to animal [Unknown]
  - Heart rate increased [Unknown]
  - Feeling abnormal [Unknown]
  - Epistaxis [Recovering/Resolving]
  - Infusion site mass [Unknown]
  - Injection site swelling [Unknown]
  - Muscular weakness [Unknown]
  - Stomatitis [Unknown]
  - Cough [Unknown]
  - Injection site pain [Unknown]
  - Tachycardia [Unknown]
  - Arthralgia [Unknown]
  - Fatigue [Not Recovered/Not Resolved]
  - Headache [Not Recovered/Not Resolved]
  - Pruritus [Unknown]
  - Infusion site erythema [Unknown]
  - Migraine [Unknown]
  - Infusion site pain [Unknown]
  - Lung disorder [Not Recovered/Not Resolved]
  - Asthma [Unknown]

NARRATIVE: CASE EVENT DATE: 20240405
